FAERS Safety Report 9766287 (Version 1)
Quarter: 2013Q4

REPORT INFORMATION
  Report Type: Spontaneous
  Country: US (occurrence: US)
  Receive Date: 20131217
  Receipt Date: 20131217
  Transmission Date: 20140711
  Serious: No
  Sender: FDA-Public Use
  Company Number: US-BAYER-2013-153983

PATIENT
  Age: 76 Year
  Sex: Female
  Weight: 52.15 kg

DRUGS (6)
  1. ALEVE CAPLET [Suspect]
     Indication: BACK PAIN
     Dosage: 1 DF, EVERY 12 HOURS
     Route: 048
     Dates: start: 201312
  2. GABAPENTIN [Concomitant]
  3. OXYBUTYNIN [Concomitant]
     Dosage: 5 G, UNK
  4. LISINOPRIL [Concomitant]
     Dosage: 10 MG, UNK
  5. BAYER ASPIRIN REGIMEN ADULT LOW STRENGTH [Concomitant]
     Dosage: 1 DF, QD
     Route: 048
  6. VITAMIN D [Concomitant]

REACTIONS (1)
  - Drug ineffective [None]
